FAERS Safety Report 12271637 (Version 1)
Quarter: 2016Q2

REPORT INFORMATION
  Report Type: Spontaneous
  Country: US (occurrence: None)
  Receive Date: 20160414
  Receipt Date: 20160414
  Transmission Date: 20160815
  Serious: No
  Sender: FDA-Public Use
  Company Number: None

PATIENT
  Sex: Male

DRUGS (1)
  1. TESTOPEL [Suspect]
     Active Substance: TESTOSTERONE
     Indication: TESTICULAR FAILURE
     Dosage: 900 MG OR 12 PELLETS Q4MOS SC
     Route: 058
     Dates: start: 20150709, end: 201604

REACTIONS (3)
  - Dyspnoea [None]
  - Sluggishness [None]
  - Chest discomfort [None]

NARRATIVE: CASE EVENT DATE: 2016
